FAERS Safety Report 5563331-8 (Version None)
Quarter: 2007Q4

REPORT INFORMATION
  Report Type: 
  Country: None (occurrence: None)
  Receive Date: 20071212
  Receipt Date: 20071205
  Transmission Date: 20080405
  Serious: Yes (Hospitalization, Other)
  Sender: FDA-Public Use
  Company Number: 2007-03878

PATIENT
  Age: 59 Year
  Sex: Male
  Weight: 79.4 kg

DRUGS (4)
  1. VELCADE [Suspect]
     Indication: MULTIPLE MYELOMA
     Dosage: INTRAVENOUS
     Route: 042
     Dates: start: 20070501, end: 20071113
  2. DEXAMETHASONE TAB [Concomitant]
  3. ANTIFUNGALS [Concomitant]
  4. ANTIBIOTICS [Concomitant]

REACTIONS (12)
  - ABDOMINAL DISTENSION [None]
  - APHONIA [None]
  - ASTHENIA [None]
  - BLOOD POTASSIUM DECREASED [None]
  - CONSTIPATION [None]
  - FAECALOMA [None]
  - FEELING ABNORMAL [None]
  - HYPOAESTHESIA [None]
  - MUSCLE SPASMS [None]
  - NEUROPATHY PERIPHERAL [None]
  - ORTHOSTATIC HYPOTENSION [None]
  - SALIVARY HYPERSECRETION [None]
